FAERS Safety Report 5934031-7 (Version None)
Quarter: 2008Q4

REPORT INFORMATION
  Report Type: 
  Country: None (occurrence: None)
  Receive Date: 20081028
  Receipt Date: 20081028
  Transmission Date: 20090506
  Serious: Yes (Hospitalization)
  Sender: FDA-Public Use
  Company Number: None

PATIENT
  Sex: Female
  Weight: 82 kg

DRUGS (3)
  1. BUSULFAN [Suspect]
     Indication: ACUTE MYELOID LEUKAEMIA
     Dosage: 72 MG 16X Q6HR ORAL
     Route: 048
     Dates: start: 20080522, end: 20080525
  2. CYCLOPHOSPHAMIDE [Suspect]
     Indication: ACUTE MYELOID LEUKAEMIA
     Dosage: 3960 MG DAILY X2 IV
     Route: 042
     Dates: start: 20080526
  3. CYCLOPHOSPHAMIDE [Suspect]
     Indication: ACUTE MYELOID LEUKAEMIA
     Dosage: 3960 MG DAILY X2 IV
     Route: 042
     Dates: start: 20080527

REACTIONS (2)
  - EPISTAXIS [None]
  - THROMBOCYTOPENIA [None]
